FAERS Safety Report 12340554 (Version 1)
Quarter: 2016Q2

REPORT INFORMATION
  Report Type: Spontaneous
  Country: US (occurrence: None)
  Receive Date: 20160505
  Receipt Date: 20160505
  Transmission Date: 20160815
  Serious: Yes (Life-Threatening)
  Sender: FDA-Public Use
  Company Number: None

PATIENT
  Age: 53 Year
  Sex: Male
  Weight: 69 kg

DRUGS (1)
  1. INFLIXIMAB [Suspect]
     Active Substance: INFLIXIMAB
     Indication: CROHN^S DISEASE
     Route: 042
     Dates: start: 20160310, end: 20160324

REACTIONS (15)
  - Headache [None]
  - Influenza like illness [None]
  - Vomiting [None]
  - Joint stiffness [None]
  - Pain [None]
  - Arthralgia [None]
  - Rash [None]
  - Erythema multiforme [None]
  - Hyperhidrosis [None]
  - Respiratory depression [None]
  - Diarrhoea [None]
  - Tremor [None]
  - Nausea [None]
  - Lethargy [None]
  - Pain in extremity [None]

NARRATIVE: CASE EVENT DATE: 20160324
